FAERS Safety Report 7085309-8 (Version None)
Quarter: 2010Q4

REPORT INFORMATION
  Report Type: 
  Country: None (occurrence: None)
  Receive Date: 20101105
  Receipt Date: 20101028
  Transmission Date: 20110411
  Serious: Yes (Other)
  Sender: FDA-Public Use
  Company Number: JP-PFIZER INC-2010127780

PATIENT
  Age: 80 Year
  Sex: Female
  Weight: 46 kg

DRUGS (5)
  1. REVATIO [Suspect]
     Indication: PULMONARY HYPERTENSION
     Dosage: 20 MG, 3X/DAY
     Route: 048
     Dates: start: 20100726, end: 20100907
  2. FORIT [Suspect]
     Dosage: 20 MG, 1X/DAY
     Route: 048
     Dates: start: 20100612, end: 20100727
  3. ALDACTONE [Concomitant]
     Indication: CARDIAC FAILURE
     Dosage: 25 MG, 1X/DAY
     Route: 048
     Dates: start: 20100616
  4. MYSLEE [Concomitant]
     Indication: INSOMNIA
     Dosage: 5 MG, 1X/DAY
     Route: 048
     Dates: start: 20100708
  5. THYRADIN S [Concomitant]
     Indication: HYPOTHYROIDISM
     Dosage: 25 UG, 1X/DAY
     Route: 048
     Dates: start: 20100612

REACTIONS (2)
  - TREMOR [None]
  - WHITE BLOOD CELL COUNT DECREASED [None]
